FAERS Safety Report 6994641-5 (Version None)
Quarter: 2010Q3

REPORT INFORMATION
  Report Type: 
  Country: None (occurrence: None)
  Receive Date: 20100915
  Receipt Date: 20100915
  Transmission Date: 20110219
  Serious: Yes (Hospitalization, Other)
  Sender: FDA-Public Use
  Company Number: None

PATIENT
  Sex: Male
  Weight: 37.6 kg

DRUGS (1)
  1. IBUPROFEN [Suspect]
     Indication: PROCEDURAL PAIN
     Dosage: 350 MG Q8H PRN PO
     Route: 048
     Dates: start: 20100318, end: 20100720

REACTIONS (3)
  - GASTRITIS [None]
  - HYPOPHAGIA [None]
  - WEIGHT DECREASED [None]
